FAERS Safety Report 6599832-3 (Version None)
Quarter: 2010Q1

REPORT INFORMATION
  Report Type: 
  Country: None (occurrence: None)
  Receive Date: 20100224
  Receipt Date: 20100218
  Transmission Date: 20100710
  Serious: Yes (Other)
  Sender: FDA-Public Use
  Company Number: US-ALLERGAN-0911296US

PATIENT
  Age: 67 Year
  Sex: Female
  Weight: 79.4 kg

DRUGS (18)
  1. BLINDED DEXAMETHASONE 0.35 MG IMP [Suspect]
     Indication: DIABETIC RETINAL OEDEMA
     Dosage: UNK
     Route: 031
     Dates: start: 20080519, end: 20080519
  2. BLINDED DEXAMETHASONE 0.7 MG IMP [Suspect]
     Indication: DIABETIC RETINAL OEDEMA
     Dosage: UNK
     Route: 031
     Dates: start: 20080519, end: 20080519
  3. BLINDED INTRAVITREAL SHAM [Suspect]
     Indication: DIABETIC RETINAL OEDEMA
     Dosage: UNK
     Route: 031
     Dates: start: 20080519, end: 20080519
  4. BLINDED DEXAMETHASONE 0.35 MG IMP [Suspect]
     Dosage: UNK
     Route: 031
     Dates: start: 20081103, end: 20081103
  5. BLINDED DEXAMETHASONE 0.7 MG IMP [Suspect]
     Dosage: UNK
     Route: 031
     Dates: start: 20081103, end: 20081103
  6. BLINDED INTRAVITREAL SHAM [Suspect]
     Dosage: UNK
     Route: 031
     Dates: start: 20081103, end: 20081103
  7. BLINDED DEXAMETHASONE 0.35 MG IMP [Suspect]
     Dosage: UNK
     Route: 031
     Dates: start: 20090519, end: 20090519
  8. BLINDED DEXAMETHASONE 0.7 MG IMP [Suspect]
     Dosage: UNK
     Route: 031
     Dates: start: 20090519, end: 20090519
  9. BLINDED INTRAVITREAL SHAM [Suspect]
     Dosage: UNK
     Route: 031
     Dates: start: 20090519, end: 20090519
  10. INSULIN [Concomitant]
  11. CRESTOR [Concomitant]
  12. DETROL LA [Concomitant]
  13. NEURONTIN [Concomitant]
  14. TRIAMTERENE AND HYDROCHLOROTHIAZIDE [Concomitant]
  15. LISINOPRIL [Concomitant]
  16. METFORMIN HCL [Concomitant]
  17. ZOLOFT [Concomitant]
  18. LANTUS [Concomitant]

REACTIONS (1)
  - RETINAL DETACHMENT [None]
